FAERS Safety Report 7229727-3 (Version None)
Quarter: 2011Q1

REPORT INFORMATION
  Report Type: 
  Country: None (occurrence: None)
  Receive Date: 20110117
  Receipt Date: 20110109
  Transmission Date: 20110831
  Serious: Yes (Hospitalization)
  Sender: FDA-Public Use
  Company Number: US-PURDUE-USA-2011-0061957

PATIENT
  Sex: Female

DRUGS (1)
  1. OXYCONTIN [Suspect]
     Indication: PRODUCT USED FOR UNKNOWN INDICATION
     Dosage: 80 MG, BID
     Route: 048
     Dates: start: 20101001

REACTIONS (6)
  - DIZZINESS [None]
  - DRUG HYPERSENSITIVITY [None]
  - DRUG INEFFECTIVE [None]
  - DYSPNOEA [None]
  - BLOOD PRESSURE INCREASED [None]
  - RASH [None]
